FAERS Safety Report 9456586 (Version 2)
Quarter: 2013Q3

REPORT INFORMATION
  Report Type: Spontaneous
  Country: CA (occurrence: CA)
  Receive Date: 20130813
  Receipt Date: 20130820
  Transmission Date: 20140515
  Serious: Yes (Death)
  Sender: FDA-Public Use
  Company Number: CA-VERTEX PHARMACEUTICALS INC-2013-008746

PATIENT
  Age: 59 Year
  Sex: Male
  Weight: 95 kg

DRUGS (7)
  1. INCIVEK [Suspect]
     Indication: HEPATITIS C
     Dosage: UNK
     Route: 048
     Dates: end: 20130709
  2. PEGASYS [Suspect]
     Indication: HEPATITIS C
     Dosage: 180 ?G, UNK
     Route: 058
     Dates: start: 20130327, end: 20130810
  3. RIBAVIRIN [Suspect]
     Indication: HEPATITIS C
     Dosage: 1400 MG, UNK
     Route: 048
     Dates: start: 20130327, end: 20130810
  4. SYNTHROID [Concomitant]
     Indication: HYPERTENSION
  5. COVERSYL [Concomitant]
     Indication: HYPERTENSION
  6. HYDROCHLOROTHIAZID [Concomitant]
     Indication: HYPERTENSION
  7. RITUXAN [Concomitant]
     Dosage: UNK

REACTIONS (2)
  - Myocardial infarction [Fatal]
  - Haemoglobin decreased [Not Recovered/Not Resolved]
